FAERS Safety Report 25976224 (Version 3)
Quarter: 2025Q4

REPORT INFORMATION
  Report Type: Spontaneous
  Country: EU (occurrence: EU)
  Receive Date: 20251029
  Receipt Date: 20251208
  Transmission Date: 20260118
  Serious: Yes (Other)
  Sender: NOVARTIS
  Company Number: EU-SANOFI-02608713

PATIENT
  Age: 24 Year
  Sex: Female
  Weight: 55 kg

DRUGS (16)
  1. OXCARBAZEPINE [Suspect]
     Active Substance: OXCARBAZEPINE
     Indication: Product used for unknown indication
     Dosage: UNK
     Route: 065
     Dates: start: 20160421, end: 201907
  2. OXCARBAZEPINE [Suspect]
     Active Substance: OXCARBAZEPINE
     Dosage: UNK
     Route: 065
     Dates: end: 20231110
  3. VALPROATE SODIUM [Suspect]
     Active Substance: VALPROATE SODIUM
     Indication: Epilepsy
     Dosage: 500 MG, QD (IN THE MORNING)
     Route: 065
     Dates: start: 2015
  4. VALPROATE SODIUM [Suspect]
     Active Substance: VALPROATE SODIUM
     Dosage: 500 MG, QD (AT LUNCH)
     Route: 065
  5. VALPROATE SODIUM [Suspect]
     Active Substance: VALPROATE SODIUM
     Dosage: 250 MG, QD
     Route: 065
     Dates: start: 2025
  6. VALPROATE SODIUM [Suspect]
     Active Substance: VALPROATE SODIUM
     Dosage: 1100 MG, QD, 500 MG IN THE MORNING, 250 MG + 100 MG IN THE AFTERNOON, 250 MG IN THE EVENING
     Route: 065
     Dates: start: 2025
  7. DROSPIRENONE [Concomitant]
     Active Substance: DROSPIRENONE
     Indication: Product used for unknown indication
     Dosage: UNK
     Route: 065
  8. VITAMIN B12 [Concomitant]
     Active Substance: CYANOCOBALAMIN
     Indication: Product used for unknown indication
     Dosage: UNK
     Route: 065
  9. VITAMIN B6 [Concomitant]
     Active Substance: PYRIDOXINE HYDROCHLORIDE
     Indication: Product used for unknown indication
     Dosage: UNK
     Route: 065
  10. VITAMIN B1 [Concomitant]
     Active Substance: THIAMINE HYDROCHLORIDE
     Indication: Product used for unknown indication
     Dosage: UNK
     Route: 065
  11. ORTHO EVRA [Concomitant]
     Active Substance: ETHINYL ESTRADIOL\NORELGESTROMIN
     Indication: Product used for unknown indication
     Dosage: UNK
     Route: 065
  12. Nurofenteen [Concomitant]
     Indication: Headache
     Dosage: UNK AS NECESSARY, PRN
     Route: 065
  13. Vado [Concomitant]
     Indication: Product used for unknown indication
     Dosage: UNK
     Route: 065
  14. Enterolactis [Concomitant]
     Indication: Product used for unknown indication
     Dosage: UNK
     Route: 065
  15. VALPROATE MAGNESIUM [Concomitant]
     Active Substance: VALPROATE MAGNESIUM
     Indication: Product used for unknown indication
     Dosage: UNK
     Route: 065
     Dates: start: 20151002, end: 201907
  16. VALPROATE SODIUM [Concomitant]
     Active Substance: VALPROATE SODIUM
     Indication: Product used for unknown indication
     Dosage: UNK
     Route: 065
     Dates: start: 201907, end: 20221126

REACTIONS (18)
  - Epilepsy [Recovered/Resolved]
  - Seizure [Recovered/Resolved]
  - Blood prolactin increased [Not Recovered/Not Resolved]
  - Amylase increased [Not Recovered/Not Resolved]
  - Hyponatraemia [Unknown]
  - Salivary hypersecretion [Not Recovered/Not Resolved]
  - Weight decreased [Unknown]
  - Decreased appetite [Unknown]
  - Drug level increased [Unknown]
  - Drooling [Unknown]
  - Increased appetite [Recovered/Resolved]
  - Gastrooesophageal reflux disease [Unknown]
  - Ammonia increased [Not Recovered/Not Resolved]
  - Weight increased [Recovered/Resolved]
  - Abdominal pain upper [Unknown]
  - Vomiting [Unknown]
  - Nausea [Unknown]
  - Alopecia [Unknown]

NARRATIVE: CASE EVENT DATE: 20220101
